FAERS Safety Report 12933954 (Version 1)
Quarter: 2016Q4

REPORT INFORMATION
  Report Type: Spontaneous
  Country: JP (occurrence: JP)
  Receive Date: 20161111
  Receipt Date: 20161111
  Transmission Date: 20170207
  Serious: Yes (Other)
  Sender: FDA-Public Use
  Company Number: JP-UCBSA-2016028576

PATIENT
  Age: 29 Year
  Sex: Female

DRUGS (1)
  1. E KEPPRA [Suspect]
     Active Substance: LEVETIRACETAM
     Indication: EPILEPSY
     Dosage: 625 MG DAILY
     Route: 048
     Dates: start: 201507

REACTIONS (2)
  - Caesarean section [Unknown]
  - Pregnancy [Unknown]

NARRATIVE: CASE EVENT DATE: 20160815
